FAERS Safety Report 22291925 (Version 1)
Quarter: 2023Q2

REPORT INFORMATION
  Report Type: Spontaneous
  Country: US (occurrence: US)
  Receive Date: 20230507
  Receipt Date: 20230507
  Transmission Date: 20230722
  Serious: Yes (Other)
  Sender: FDA-Public Use
  Company Number: US-BAUSCHBL-2023BNL003757

PATIENT
  Sex: Male

DRUGS (1)
  1. OPCON-A [Suspect]
     Active Substance: NAPHAZOLINE HYDROCHLORIDE\PHENIRAMINE MALEATE
     Indication: Hypersensitivity
     Dosage: USED 1 DROP IN THE LEFT EYE
     Route: 047
     Dates: end: 2023

REACTIONS (1)
  - Instillation site erythema [Unknown]

NARRATIVE: CASE EVENT DATE: 20230401
